FAERS Safety Report 8473619-9 (Version None)
Quarter: 2012Q2

REPORT INFORMATION
  Report Type: 
  Country: None (occurrence: None)
  Receive Date: 20120628
  Receipt Date: 20110825
  Transmission Date: 20120825
  Serious: Yes (Other)
  Sender: FDA-Public Use
  Company Number: US-MYLANLABS-2011S1014238

PATIENT
  Age: 32 Year
  Sex: Male

DRUGS (1)
  1. CLOZAPINE [Suspect]

REACTIONS (1)
  - GRANULOCYTOPENIA [None]
